FAERS Safety Report 8014561-7 (Version None)
Quarter: 2011Q4

REPORT INFORMATION
  Report Type: 
  Country: None (occurrence: None)
  Receive Date: 20111229
  Receipt Date: 20111219
  Transmission Date: 20120403
  Serious: Yes (Death)
  Sender: FDA-Public Use
  Company Number: US-PFIZER INC-2011310511

PATIENT
  Age: 29 Year
  Sex: Male

DRUGS (4)
  1. HEROIN [Suspect]
     Route: 051
  2. PREGABALIN [Suspect]
     Route: 051
  3. CLONAZEPAM [Suspect]
     Route: 051
  4. MIDAZOLAM [Suspect]
     Route: 051

REACTIONS (3)
  - CARDIAC ARREST [None]
  - DRUG ABUSE [None]
  - RESPIRATORY ARREST [None]
